FAERS Safety Report 23147904 (Version 2)
Quarter: 2023Q4

REPORT INFORMATION
  Report Type: Other
  Country: PT (occurrence: None)
  Receive Date: 20231106
  Receipt Date: 20231213
  Transmission Date: 20240109
  Serious: Yes (Hospitalization)
  Sender: FDA-Public Use
  Company Number: PT-ROCHE-2273720

PATIENT
  Age: 70 Year
  Sex: Female

DRUGS (20)
  1. PERJETA [Suspect]
     Active Substance: PERTUZUMAB
     Indication: HER2 positive breast cancer
     Dosage: MOST RECENT DOSE PRIOR TO THE EVENT: 12/APR/2018
     Route: 042
     Dates: start: 20180322, end: 20180322
  2. TAXOTERE [Suspect]
     Active Substance: DOCETAXEL
     Indication: HER2 positive breast cancer
     Route: 042
     Dates: start: 20180301, end: 20180731
  3. HERCEPTIN [Suspect]
     Active Substance: TRASTUZUMAB
     Indication: HER2 positive breast cancer
     Dosage: MOST RECENT DOSE PRIOR TO THE EVENT: 12/APR/2018
     Route: 058
     Dates: start: 20180301, end: 20180301
  4. CELEBREX [Concomitant]
     Active Substance: CELECOXIB
  5. AMINOPHYLLINE [Concomitant]
     Active Substance: AMINOPHYLLINE
  6. ABSTRAL [Concomitant]
     Active Substance: FENTANYL CITRATE
  7. BRICANYL [Concomitant]
     Active Substance: TERBUTALINE SULFATE
  8. ACETAMINOPHEN\CODEINE PHOSPHATE [Concomitant]
     Active Substance: ACETAMINOPHEN\CODEINE PHOSPHATE
  9. LEVETIRACETAM [Concomitant]
     Active Substance: LEVETIRACETAM
     Dates: start: 20180504
  10. ACETAMINOPHEN [Concomitant]
     Active Substance: ACETAMINOPHEN
     Dates: start: 20180909, end: 20180909
  11. FENOFIBRATE [Concomitant]
     Active Substance: FENOFIBRATE
  12. LACTULOSE [Concomitant]
     Active Substance: LACTULOSE
  13. ALPRAZOLAM [Concomitant]
     Active Substance: ALPRAZOLAM
  14. PANTOPRAZOLE [Concomitant]
     Active Substance: PANTOPRAZOLE
  15. PITAVASTATIN [Concomitant]
     Active Substance: PITAVASTATIN
  16. IRBESARTAN [Concomitant]
     Active Substance: IRBESARTAN
  17. BUPRENORPHINE [Concomitant]
     Active Substance: BUPRENORPHINE
  18. GABAPENTIN [Concomitant]
     Active Substance: GABAPENTIN
  19. DEXAMETHASONE [Concomitant]
     Active Substance: DEXAMETHASONE
  20. CIPROFLOXACIN [Concomitant]
     Active Substance: CIPROFLOXACIN
     Dates: end: 20180715

REACTIONS (1)
  - Febrile neutropenia [Recovered/Resolved]

NARRATIVE: CASE EVENT DATE: 20180810
